FAERS Safety Report 4826356-3 (Version None)
Quarter: 2005Q4

REPORT INFORMATION
  Report Type: 
  Country: None (occurrence: None)
  Receive Date: 20051111
  Receipt Date: 20051017
  Transmission Date: 20060501
  Serious: Yes (Hospitalization)
  Sender: FDA-Public Use
  Company Number: PHRM2005FR02786

PATIENT
  Age: 52 Year
  Sex: Female
  Weight: 82 kg

DRUGS (5)
  1. LESCOL [Suspect]
     Indication: DYSLIPIDAEMIA
     Dosage: 20 MG, QD
     Route: 048
     Dates: start: 19970101, end: 20050708
  2. RIMIFON [Suspect]
     Indication: INFECTION PROPHYLAXIS
     Dosage: UNK, UNK
     Route: 048
     Dates: start: 20050315, end: 20050628
  3. KENZEN [Concomitant]
     Indication: HYPERTENSION
     Dosage: 16 MG, QD
     Route: 048
  4. LERCAN [Concomitant]
     Indication: HYPERTENSION
     Dosage: 10 MG, QD
     Route: 048
  5. KARDEGIC [Concomitant]
     Indication: THROMBOSIS PROPHYLAXIS
     Dosage: 75 MG, QD
     Route: 048

REACTIONS (38)
  - ALANINE AMINOTRANSFERASE INCREASED [None]
  - ALPHA 2 GLOBULIN DECREASED [None]
  - AMMONIA INCREASED [None]
  - ASCITES [None]
  - ASPARTATE AMINOTRANSFERASE INCREASED [None]
  - BLOOD ALKALINE PHOSPHATASE INCREASED [None]
  - BLOOD BILIRUBIN INCREASED [None]
  - BLOOD CREATINE PHOSPHOKINASE INCREASED [None]
  - BLOOD CREATINE PHOSPHOKINASE MB INCREASED [None]
  - BLOOD CREATININE DECREASED [None]
  - BLOOD FIBRINOGEN INCREASED [None]
  - BLOOD LACTATE DEHYDROGENASE INCREASED [None]
  - BLOOD UREA INCREASED [None]
  - C-REACTIVE PROTEIN INCREASED [None]
  - CHEST PAIN [None]
  - COAGULATION FACTOR DECREASED [None]
  - COXSACKIE VIRUS SEROLOGY TEST POSITIVE [None]
  - CYTOLYTIC HEPATITIS [None]
  - FLUID REPLACEMENT [None]
  - GAMMA-GLUTAMYLTRANSFERASE INCREASED [None]
  - GASTROINTESTINAL DISORDER [None]
  - HEPATIC FIBROSIS [None]
  - HYPOALBUMINAEMIA [None]
  - HYPOCALCAEMIA [None]
  - HYPONATRAEMIA [None]
  - JAUNDICE CHOLESTATIC [None]
  - MYALGIA [None]
  - MYOGLOBIN BLOOD INCREASED [None]
  - OEDEMA PERIPHERAL [None]
  - PROTEIN TOTAL DECREASED [None]
  - PROTHROMBIN TIME RATIO DECREASED [None]
  - RENAL FAILURE [None]
  - RHABDOMYOLYSIS [None]
  - SMOOTH MUSCLE ANTIBODY POSITIVE [None]
  - URINE CHLORIDE INCREASED [None]
  - URINE SODIUM INCREASED [None]
  - WALKING DISABILITY [None]
  - WHITE BLOOD CELL COUNT INCREASED [None]
